FAERS Safety Report 18189330 (Version 1)
Quarter: 2020Q3

REPORT INFORMATION
  Report Type: Spontaneous
  Country: US (occurrence: US)
  Receive Date: 20200824
  Receipt Date: 20200824
  Transmission Date: 20201103
  Serious: No
  Sender: FDA-Public Use
  Company Number: US-BAYER-2020-176234

PATIENT
  Age: 73 Year
  Sex: Female

DRUGS (6)
  1. PROBIOTICS NOS [Concomitant]
     Active Substance: PROBIOTICS NOS
     Dosage: UNK
  2. PROLEX [Concomitant]
     Dosage: UNK
  3. FIBER [Concomitant]
     Active Substance: PSYLLIUM HUSK
     Dosage: UNK
  4. PEMOLINE [Concomitant]
     Active Substance: PEMOLINE
     Dosage: UNK
  5. EPIPEN [Concomitant]
     Active Substance: EPINEPHRINE
     Dosage: UNK
  6. MIRALAX [Suspect]
     Active Substance: POLYETHYLENE GLYCOL 3350
     Indication: GASTROINTESTINAL DISORDER
     Dosage: ACCORDING TO LABELED DIRECTIONS
     Route: 048
     Dates: start: 20200817, end: 20200819

REACTIONS (1)
  - Prescribed underdose [Unknown]
